FAERS Safety Report 20013211 (Version 2)
Quarter: 2022Q1

REPORT INFORMATION
  Report Type: Report from Study
  Country: US (occurrence: US)
  Receive Date: 20211029
  Receipt Date: 20220105
  Transmission Date: 20220424
  Serious: Yes (Life-Threatening, Other)
  Sender: FDA-Public Use
  Company Number: US-BRISTOL-MYERS SQUIBB COMPANY-BMS-2019-097324

PATIENT
  Age: 45 Year
  Sex: Female
  Weight: 86.6 kg

DRUGS (4)
  1. NIVOLUMAB [Suspect]
     Active Substance: NIVOLUMAB
     Indication: Glioblastoma multiforme
     Dosage: 240 MILLIGRAM
     Route: 065
     Dates: start: 20190819, end: 20190904
  2. AGLATIMAGENE BESADENOVEC [Suspect]
     Active Substance: AGLATIMAGENE BESADENOVEC
     Indication: Glioblastoma multiforme
     Dosage: 1 MILLILITER
     Route: 065
     Dates: end: 20190816
  3. VALACYCLOVIR HYDROCHLORIDE [Suspect]
     Active Substance: VALACYCLOVIR HYDROCHLORIDE
     Indication: Glioblastoma multiforme
     Dosage: 84 GRAM
     Route: 065
     Dates: start: 20190819, end: 20190902
  4. TEMOZOLOMIDE [Suspect]
     Active Substance: TEMOZOLOMIDE
     Indication: Glioblastoma multiforme
     Dosage: 3045 MILLIGRAM
     Route: 065
     Dates: start: 20190903, end: 20191002

REACTIONS (2)
  - Neutrophil count decreased [Recovered/Resolved]
  - Platelet count decreased [Recovered/Resolved]

NARRATIVE: CASE EVENT DATE: 20191004
